FAERS Safety Report 9170944 (Version 1)
Quarter: 2013Q1

REPORT INFORMATION
  Report Type: Spontaneous
  Country: US (occurrence: None)
  Receive Date: 20130315
  Receipt Date: 20130315
  Transmission Date: 20140127
  Serious: Yes (Hospitalization)
  Sender: FDA-Public Use
  Company Number: None

PATIENT
  Age: 59 Year
  Sex: Male
  Weight: 99.2 kg

DRUGS (1)
  1. AZATHIOPRINE [Suspect]
     Indication: MUSCULAR WEAKNESS
     Route: 048
     Dates: start: 20130219, end: 20130313

REACTIONS (8)
  - Vision blurred [None]
  - Condition aggravated [None]
  - Asthenia [None]
  - Diplopia [None]
  - Chills [None]
  - Body temperature fluctuation [None]
  - Hyperhidrosis [None]
  - Pyrexia [None]
